FAERS Safety Report 9474229 (Version 1)
Quarter: 2013Q3

REPORT INFORMATION
  Report Type: Spontaneous
  Country: GB (occurrence: None)
  Receive Date: 20130820
  Receipt Date: 20130820
  Transmission Date: 20140515
  Serious: Yes (Other)
  Sender: FDA-Public Use
  Company Number: GB-DEXPHARM-20130476

PATIENT
  Age: 55 Year
  Sex: Female

DRUGS (4)
  1. OMEPRAZOLE [Suspect]
     Route: 048
     Dates: start: 20130620, end: 20130730
  2. SALBUTAMOL [Concomitant]
  3. SPIRIVA [Concomitant]
  4. SYMBICORT [Concomitant]

REACTIONS (5)
  - Tongue blistering [None]
  - Swollen tongue [None]
  - Oral pain [None]
  - Glossodynia [None]
  - Oral discomfort [None]
